FAERS Safety Report 21652601 (Version 3)
Quarter: 2022Q4

REPORT INFORMATION
  Report Type: Report from Study
  Country: RU (occurrence: RU)
  Receive Date: 20221128
  Receipt Date: 20221206
  Transmission Date: 20230112
  Serious: Yes (Life-Threatening, Hospitalization)
  Sender: FDA-Public Use
  Company Number: RU-ABBVIE-4210338

PATIENT
  Age: 33 Year
  Sex: Male
  Weight: 79.7 kg

DRUGS (3)
  1. PLACEBO [Suspect]
     Active Substance: UNSPECIFIED INGREDIENT
     Indication: Axial spondyloarthritis
     Route: 048
     Dates: start: 20201022, end: 20211025
  2. UPADACITINIB [Suspect]
     Active Substance: UPADACITINIB
     Indication: Axial spondyloarthritis
     Route: 048
     Dates: start: 20211026
  3. MELOXICAM [Concomitant]
     Active Substance: MELOXICAM
     Indication: Axial spondyloarthritis
     Route: 048
     Dates: start: 201909

REACTIONS (1)
  - Coronary artery thrombosis [Recovered/Resolved]

NARRATIVE: CASE EVENT DATE: 20220901
